FAERS Safety Report 10203687 (Version 1)
Quarter: 2014Q2

REPORT INFORMATION
  Report Type: Spontaneous
  Country: RO (occurrence: None)
  Receive Date: 20140523
  Receipt Date: 20140523
  Transmission Date: 20141212
  Serious: Yes (Hospitalization)
  Sender: FDA-Public Use
  Company Number: METZ20140005

PATIENT
  Age: 51 Year
  Sex: Male

DRUGS (2)
  1. METHIMAZOLE [Suspect]
     Indication: HYPERTHYROIDISM
     Route: 048
  2. CARBIMAZOLE [Suspect]
     Indication: HYPERTHYROIDISM
     Dosage: UNKNOWN, UNKNOWN, ORAL
     Route: 048

REACTIONS (8)
  - Weight decreased [None]
  - Pruritus [None]
  - Arthralgia [None]
  - Jaundice [None]
  - Rash macular [None]
  - Hepatomegaly [None]
  - Haemolytic anaemia [None]
  - Blood alkaline phosphatase increased [None]
